FAERS Safety Report 8491241-5 (Version None)
Quarter: 2012Q3

REPORT INFORMATION
  Report Type: 
  Country: None (occurrence: None)
  Receive Date: 20120706
  Receipt Date: 20120629
  Transmission Date: 20120928
  Serious: Yes (Other)
  Sender: FDA-Public Use
  Company Number: PHHY2012GB056001

PATIENT
  Sex: Female
  Weight: 35 kg

DRUGS (1)
  1. LETROZOLE [Suspect]
     Indication: OVULATION INDUCTION
     Dosage: UNK UKN, UNK

REACTIONS (5)
  - MOBILITY DECREASED [None]
  - PRE-ECLAMPSIA [None]
  - IMPAIRED HEALING [None]
  - MATERNAL EXPOSURE DURING PREGNANCY [None]
  - WOUND INFECTION [None]
